FAERS Safety Report 4636837-3 (Version None)
Quarter: 2005Q2

REPORT INFORMATION
  Report Type: 
  Country: None (occurrence: None)
  Receive Date: 20050414
  Receipt Date: 20050407
  Transmission Date: 20051028
  Serious: Yes (Hospitalization, Other)
  Sender: FDA-Public Use
  Company Number: 230525K05USA

PATIENT
  Age: 53 Year
  Sex: Female

DRUGS (3)
  1. REBIF [Suspect]
     Indication: MULTIPLE SCLEROSIS
     Dosage: 44 MCG, 3 IN 1 WEEKS, SUBCUTANEOUS (SEE IMAGE)
     Route: 058
     Dates: start: 20030117, end: 20050210
  2. REBIF [Suspect]
     Indication: MULTIPLE SCLEROSIS
     Dosage: 44 MCG, 3 IN 1 WEEKS, SUBCUTANEOUS (SEE IMAGE)
     Route: 058
     Dates: start: 20050211
  3. ZOCOR [Concomitant]

REACTIONS (18)
  - ADJUSTMENT DISORDER [None]
  - ALANINE AMINOTRANSFERASE INCREASED [None]
  - ANXIETY [None]
  - ASPARTATE AMINOTRANSFERASE INCREASED [None]
  - ASTHENIA [None]
  - BLADDER CANCER [None]
  - BLADDER CANCER STAGE II [None]
  - CONDITION AGGRAVATED [None]
  - COUGH [None]
  - FEELING ABNORMAL [None]
  - MALAISE [None]
  - MULTIPLE SCLEROSIS [None]
  - MYALGIA [None]
  - OTITIS MEDIA [None]
  - PAIN IN EXTREMITY [None]
  - SINUS CONGESTION [None]
  - TRANSITIONAL CELL CARCINOMA [None]
  - WHITE BLOOD CELL COUNT DECREASED [None]
